FAERS Safety Report 5997201-8 (Version None)
Quarter: 2008Q4

REPORT INFORMATION
  Report Type: 
  Country: None (occurrence: None)
  Receive Date: 20081212
  Receipt Date: 20081015
  Transmission Date: 20090506
  Serious: No
  Sender: FDA-Public Use
  Company Number: US-ABBOTT-08P-163-0485869-00

PATIENT
  Sex: Male
  Weight: 82.628 kg

DRUGS (2)
  1. HUMIRA [Suspect]
     Indication: PSORIASIS
     Dosage: LOADING DOSE
     Route: 058
     Dates: start: 20081004, end: 20081019
  2. HUMIRA [Suspect]
     Route: 050
     Dates: start: 20081004, end: 20081019

REACTIONS (3)
  - COUGH [None]
  - DYSPHAGIA [None]
  - THROAT TIGHTNESS [None]
